FAERS Safety Report 4276898-7 (Version None)
Quarter: 2004Q1

REPORT INFORMATION
  Report Type: 
  Country: None (occurrence: None)
  Receive Date: 20040120
  Receipt Date: 20040114
  Transmission Date: 20041129
  Serious: Yes (Hospitalization)
  Sender: FDA-Public Use
  Company Number: 2004CG00081

PATIENT
  Age: 75 Year
  Sex: Female

DRUGS (7)
  1. ARIMIDEX [Suspect]
     Indication: BREAST CANCER
     Dates: end: 20040113
  2. PREVISCAN [Suspect]
     Indication: CARDIAC DISORDER
     Dates: end: 20040113
  3. DEROXAT [Concomitant]
  4. HEMIGOXINE NATIVELLE [Concomitant]
  5. AMLOR [Concomitant]
  6. DOLIPRANE [Concomitant]
  7. FUNGIZONE [Concomitant]

REACTIONS (2)
  - DRUG INTERACTION [None]
  - INTERNATIONAL NORMALISED RATIO INCREASED [None]
